FAERS Safety Report 4546086-5 (Version None)
Quarter: 2005Q1

REPORT INFORMATION
  Report Type: 
  Country: None (occurrence: None)
  Receive Date: 20050103
  Receipt Date: 20041118
  Transmission Date: 20050727
  Serious: Yes (Death, Hospitalization)
  Sender: FDA-Public Use
  Company Number: US_0405103231

PATIENT
  Age: 42 Year
  Sex: Male
  Weight: 107 kg

DRUGS (34)
  1. ZYPREXA [Suspect]
     Indication: BIPOLAR DISORDER
     Dosage: 20 MG/2 DAY
     Dates: start: 19971214, end: 20030501
  2. INDERAL (PROPRANOL HYDROCHLORIDE) [Concomitant]
  3. LAMICTAL [Concomitant]
  4. PROTONIX [Concomitant]
  5. THIAMINE [Concomitant]
  6. NORMAL SALINE [Concomitant]
  7. ATIVAN [Concomitant]
  8. EXTRA STRENGTH TYLENOL [Concomitant]
  9. AMITRIPTYLINE [Concomitant]
  10. DIAZEPAM [Concomitant]
  11. PAXIL [Concomitant]
  12. DEPAKOTE [Concomitant]
  13. ZESTRIL [Concomitant]
  14. FOLATE SODIUM [Concomitant]
  15. LIBRIUM [Concomitant]
  16. KLONOPIN [Concomitant]
  17. MULTI-VITAMIN [Concomitant]
  18. PRILOSEC (OMEPRAZOLE RATIOPHARM) [Concomitant]
  19. BUSPAR [Concomitant]
  20. VICON FORTE [Concomitant]
  21. PREDNISONE [Concomitant]
  22. LORAZEPAM [Concomitant]
  23. PROPRANOL [Concomitant]
  24. LIQUIBID D [Concomitant]
  25. CEPHALEXIN [Concomitant]
  26. TEMAZEPAM [Concomitant]
  27. BENZONATATE [Concomitant]
  28. AUGMENTIN '125' [Concomitant]
  29. HYDROXYZINE PAMOATE [Concomitant]
  30. MAG-OX (MAGNESIUM OXIDE) [Concomitant]
  31. ATENOLOL [Concomitant]
  32. ERY-TAB (ERYTHROMYCIN) [Concomitant]
  33. HYDROCODONE [Concomitant]
  34. PREVACID [Concomitant]

REACTIONS (29)
  - ACCIDENTAL DEATH [None]
  - ALCOHOLISM [None]
  - ANXIETY [None]
  - APHASIA [None]
  - BLOOD CREATINE PHOSPHOKINASE INCREASED [None]
  - BODY TEMPERATURE INCREASED [None]
  - BRADYCARDIA [None]
  - CARDIO-RESPIRATORY ARREST [None]
  - COMA [None]
  - CONFUSIONAL STATE [None]
  - CONVULSION [None]
  - DYSPNOEA [None]
  - FEELING ABNORMAL [None]
  - HALLUCINATION [None]
  - HEPATIC STEATOSIS [None]
  - HEPATOMEGALY [None]
  - INFECTION [None]
  - MENTAL STATUS CHANGES [None]
  - MUSCLE ATROPHY [None]
  - NEUROLEPTIC MALIGNANT SYNDROME [None]
  - PULMONARY CONGESTION [None]
  - PULMONARY OEDEMA [None]
  - PUPIL FIXED [None]
  - PYREXIA [None]
  - RENAL TUBULAR DISORDER [None]
  - RHABDOMYOLYSIS [None]
  - SUICIDAL IDEATION [None]
  - UNRESPONSIVE TO PAIN STIMULI [None]
  - WEIGHT DECREASED [None]
